FAERS Safety Report 8604814-3 (Version None)
Quarter: 2012Q3

REPORT INFORMATION
  Report Type: 
  Country: None (occurrence: None)
  Receive Date: 20120820
  Receipt Date: 20120816
  Transmission Date: 20120928
  Serious: No
  Sender: FDA-Public Use
  Company Number: US-JNJFOC-20111002584

PATIENT
  Sex: Female
  Weight: 68.04 kg

DRUGS (22)
  1. FENTANYL-100 [Suspect]
     Indication: BACK PAIN
     Dosage: EVERY 60 HOURS
     Route: 062
     Dates: start: 20070101, end: 20120101
  2. PERCOCET [Suspect]
     Indication: RHEUMATOID ARTHRITIS
     Route: 048
     Dates: start: 20120101, end: 20120101
  3. FENTANYL-100 [Suspect]
     Indication: RHEUMATOID ARTHRITIS
     Dosage: EVERY 60 HOURS
     Route: 062
     Dates: start: 20070101, end: 20120101
  4. OXYCODONE HCL [Suspect]
     Indication: INTERVERTEBRAL DISC DEGENERATION
     Route: 048
     Dates: start: 20120101, end: 20120101
  5. METHOTREXATE [Suspect]
     Indication: RHEUMATOID ARTHRITIS
     Route: 048
     Dates: start: 20120101, end: 20120101
  6. FENTANYL-100 [Suspect]
     Indication: PAIN
     Dosage: EVERY 60 HOURS
     Route: 062
     Dates: start: 20070101, end: 20120101
  7. TRAMADOL HCL [Suspect]
     Indication: RHEUMATOID ARTHRITIS
     Dosage: 100 MG, 50 MG EVERY 4-6 HOURS
     Route: 048
     Dates: start: 20070101
  8. TRAMADOL HCL [Suspect]
     Indication: FIBROMYALGIA
     Dosage: 100 MG, 50 MG EVERY 4-6 HOURS
     Route: 048
     Dates: start: 20070101
  9. METHOTREXATE [Suspect]
     Indication: BACK PAIN
     Route: 048
     Dates: start: 20120101, end: 20120101
  10. TRAMADOL HCL [Suspect]
     Indication: INTERVERTEBRAL DISC DEGENERATION
     Dosage: 100 MG, 50 MG EVERY 4-6 HOURS
     Route: 048
     Dates: start: 20070101
  11. TRAMADOL HCL [Suspect]
     Indication: BACK PAIN
     Dosage: 100 MG, 50 MG EVERY 4-6 HOURS
     Route: 048
     Dates: start: 20070101
  12. PERCOCET [Suspect]
     Indication: FIBROMYALGIA
     Route: 048
     Dates: start: 20120101, end: 20120101
  13. PERCOCET [Suspect]
     Indication: INTERVERTEBRAL DISC DEGENERATION
     Route: 048
     Dates: start: 20120101, end: 20120101
  14. PERCOCET [Suspect]
     Indication: BACK PAIN
     Route: 048
     Dates: start: 20120101, end: 20120101
  15. OXYCODONE HCL [Suspect]
     Indication: RHEUMATOID ARTHRITIS
     Route: 048
     Dates: start: 20120101, end: 20120101
  16. OXYCODONE HCL [Suspect]
     Indication: FIBROMYALGIA
     Route: 048
     Dates: start: 20120101, end: 20120101
  17. METHOTREXATE [Suspect]
     Indication: FIBROMYALGIA
     Route: 048
     Dates: start: 20120101, end: 20120101
  18. METHOTREXATE [Suspect]
     Indication: INTERVERTEBRAL DISC DEGENERATION
     Route: 048
     Dates: start: 20120101, end: 20120101
  19. FENTANYL-100 [Suspect]
     Indication: INTERVERTEBRAL DISC DEGENERATION
     Dosage: EVERY 60 HOURS
     Route: 062
     Dates: start: 20070101, end: 20120101
  20. FENTANYL-100 [Suspect]
     Indication: ARTHRITIS
     Dosage: EVERY 60 HOURS
     Route: 062
     Dates: start: 20070101, end: 20120101
  21. OXYCODONE HCL [Suspect]
     Indication: BACK PAIN
     Route: 048
     Dates: start: 20120101, end: 20120101
  22. FENTANYL-100 [Suspect]
     Indication: FIBROMYALGIA
     Dosage: EVERY 60 HOURS
     Route: 062
     Dates: start: 20070101, end: 20120101

REACTIONS (8)
  - WITHDRAWAL SYNDROME [None]
  - INAPPROPRIATE SCHEDULE OF DRUG ADMINISTRATION [None]
  - INCORRECT DRUG ADMINISTRATION DURATION [None]
  - DRUG INEFFECTIVE [None]
  - HOT FLUSH [None]
  - DRUG DOSE OMISSION [None]
  - MUSCLE TWITCHING [None]
  - DRUG PRESCRIBING ERROR [None]
